FAERS Safety Report 5264584-6 (Version None)
Quarter: 2007Q1

REPORT INFORMATION
  Report Type: 
  Country: None (occurrence: None)
  Receive Date: 20070314
  Receipt Date: 20070302
  Transmission Date: 20070707
  Serious: Yes (Other)
  Sender: FDA-Public Use
  Company Number: 2007UW00486

PATIENT
  Age: 20709 Day
  Sex: Female
  Weight: 85.5 kg

DRUGS (2)
  1. ARIMIDEX [Suspect]
     Indication: BREAST CANCER
     Route: 048
     Dates: start: 20060512, end: 20070108
  2. ARIMIDEX [Suspect]
     Route: 048
     Dates: start: 20070115

REACTIONS (1)
  - TRIGGER FINGER [None]
